FAERS Safety Report 12264369 (Version 1)
Quarter: 2016Q2

REPORT INFORMATION
  Report Type: Not Available
  Country: US (occurrence: US)
  Receive Date: 20160413
  Receipt Date: 20160413
  Transmission Date: 20160815
  Serious: No
  Sender: FDA-Public Use
  Company Number: US-HISAMITSU-2015-US-001160

PATIENT
  Age: 77 Year
  Sex: Male

DRUGS (3)
  1. SALONPAS PAIN RELIEF [Suspect]
     Active Substance: MENTHOL\METHYL SALICYLATE
     Dosage: 5 PATCHES
     Route: 061
  2. GLUCOSAMINE [Concomitant]
     Active Substance: GLUCOSAMINE
  3. ASPIRIN. [Concomitant]
     Active Substance: ASPIRIN
     Dates: start: 201507

REACTIONS (1)
  - Drug ineffective [Unknown]
